FAERS Safety Report 9945625 (Version 1)
Quarter: 2014Q1

REPORT INFORMATION
  Report Type: Report from Study
  Country: US (occurrence: US)
  Receive Date: 20140303
  Receipt Date: 20140303
  Transmission Date: 20141002
  Serious: No
  Sender: FDA-Public Use
  Company Number: US-ABBVIE-13P-163-1049589-00

PATIENT
  Age: 32 Year
  Sex: Female

DRUGS (9)
  1. HUMIRA [Suspect]
     Indication: COLITIS ULCERATIVE
  2. LIALDA [Concomitant]
     Indication: COLITIS ULCERATIVE
  3. NORCO [Concomitant]
     Indication: PAIN
  4. ULTRAM [Concomitant]
     Indication: PAIN
     Dosage: 1-2 DAILY; AS REQUIRED
  5. LEXAPRO [Concomitant]
     Indication: DEPRESSION
     Dosage: AT BEDTIME
  6. LEXAPRO [Concomitant]
     Indication: ANXIETY
  7. XANAX [Concomitant]
     Indication: INSOMNIA
     Dosage: AT BEDTIME; AS REQUIRED
  8. CLARITIN [Concomitant]
     Indication: SEASONAL ALLERGY
  9. UNKNOWN BIRTH CONTROL PILL [Concomitant]
     Indication: PRODUCT USED FOR UNKNOWN INDICATION
     Dosage: DAILY

REACTIONS (3)
  - Weight decreased [Not Recovered/Not Resolved]
  - Injection site pain [Not Recovered/Not Resolved]
  - Drug ineffective [Not Recovered/Not Resolved]
